FAERS Safety Report 6190059-6 (Version None)
Quarter: 2009Q2

REPORT INFORMATION
  Report Type: 
  Country: None (occurrence: None)
  Receive Date: 20090514
  Receipt Date: 20080417
  Transmission Date: 20091009
  Serious: Yes (Hospitalization, Other)
  Sender: FDA-Public Use
  Company Number: US-ASTRAZENECA-2008UW01685

PATIENT
  Age: 32 Year
  Sex: Female
  Weight: 99.8 kg

DRUGS (43)
  1. SEROQUEL [Suspect]
     Indication: SLEEP APNOEA SYNDROME
     Dosage: 50 MG; 300 MG
     Route: 048
     Dates: start: 20000101
  2. SEROQUEL [Suspect]
     Indication: BIPOLAR DISORDER
     Dosage: 50 MG; 300 MG
     Route: 048
     Dates: start: 20000101
  3. SEROQUEL [Suspect]
     Indication: ANXIETY
     Dosage: 50 MG; 300 MG
     Route: 048
     Dates: start: 20000101
  4. SEROQUEL [Suspect]
     Indication: MOOD ALTERED
     Dosage: 50 MG; 300 MG
     Route: 048
     Dates: start: 20000101
  5. SEROQUEL [Suspect]
     Dosage: 25-400MG
     Route: 048
     Dates: start: 20030724
  6. SEROQUEL [Suspect]
     Dosage: 25-400MG
     Route: 048
     Dates: start: 20030724
  7. SEROQUEL [Suspect]
     Dosage: 25-400MG
     Route: 048
     Dates: start: 20030724
  8. SEROQUEL [Suspect]
     Dosage: 25-400MG
     Route: 048
     Dates: start: 20030724
  9. ABILIFY [Concomitant]
     Route: 065
     Dates: start: 20070101
  10. GEODON [Concomitant]
     Route: 065
     Dates: start: 20070101
  11. HALDOL [Concomitant]
     Route: 065
  12. ZYPREXA [Concomitant]
     Route: 065
  13. TEGRETOL [Concomitant]
     Route: 065
  14. NEURONTIN [Concomitant]
     Route: 065
  15. ZOLOFT [Concomitant]
     Route: 065
  16. VISTARIL [Concomitant]
     Route: 065
  17. VISTARIL [Concomitant]
     Route: 065
  18. BUSBAN [Concomitant]
     Route: 065
  19. TYLENOL [Concomitant]
     Indication: PAIN
     Dosage: 325-650 MG
     Route: 048
  20. LANTUS [Concomitant]
     Indication: DIABETES MELLITUS
     Dosage: 35 UNITS DAILY
     Route: 058
  21. LIPITOR [Concomitant]
     Indication: BLOOD CHOLESTEROL INCREASED
     Dosage: 40-80 MG
     Route: 048
  22. EFFEXOR XR [Concomitant]
     Indication: DEPRESSION
     Dosage: 37.5-225 MG
     Route: 048
  23. PROTONIX [Concomitant]
     Route: 048
  24. NOVOLOG [Concomitant]
     Indication: DIABETES MELLITUS
     Dosage: 10 UNITS BEFORE MEAL
     Route: 058
  25. CATAPRES [Concomitant]
     Route: 048
  26. COMBIVENT [Concomitant]
     Route: 065
  27. LEXAPRO [Concomitant]
     Route: 048
  28. PRILOSEC [Concomitant]
     Route: 048
  29. ATIVAN [Concomitant]
     Indication: AGITATION
     Route: 048
  30. RISPERDAL [Concomitant]
     Dosage: 1-30 MG
     Route: 065
  31. FLONASE [Concomitant]
     Indication: HYPERSENSITIVITY
     Route: 045
  32. FLEXERIL [Concomitant]
     Indication: MUSCLE SPASMS
     Route: 065
  33. PAROXETINE HYDROCHLORIDE [Concomitant]
     Route: 048
  34. TAZTIA XT [Concomitant]
     Dosage: 240-350 MG
     Route: 048
  35. NABUMETONE [Concomitant]
     Route: 048
  36. DICLOFENAC SODIUM [Concomitant]
     Route: 048
  37. MOBIC [Concomitant]
     Route: 048
  38. ENALAPRIL MALEATE [Concomitant]
     Indication: BLOOD PRESSURE INCREASED
     Dosage: 5-60 MG
     Route: 048
  39. REMERON [Concomitant]
     Dosage: 15-45 MG
     Route: 048
  40. VERAPAMIL [Concomitant]
     Indication: HYPERTENSION
     Dosage: 180-240 MG
     Route: 048
  41. NAPROSYN [Concomitant]
     Dosage: 100-1000 MG
     Route: 048
  42. AMBIEN [Concomitant]
     Indication: INSOMNIA
     Route: 048
  43. LESCOL XL [Concomitant]
     Route: 048

REACTIONS (25)
  - AFFECTIVE DISORDER [None]
  - ARTHRALGIA [None]
  - ARTHRITIS [None]
  - BACK PAIN [None]
  - BIPOLAR DISORDER [None]
  - BLOOD CHOLESTEROL INCREASED [None]
  - BORDERLINE PERSONALITY DISORDER [None]
  - DEPRESSION [None]
  - DIABETES MELLITUS [None]
  - DYSMENORRHOEA [None]
  - DYSTHYMIC DISORDER [None]
  - GASTROOESOPHAGEAL REFLUX DISEASE [None]
  - HOMICIDAL IDEATION [None]
  - HYPERREFLEXIA [None]
  - HYPERTENSION [None]
  - MENORRHAGIA [None]
  - OBESITY [None]
  - OSTEOARTHRITIS [None]
  - PATHOLOGICAL GAMBLING [None]
  - POST-TRAUMATIC STRESS DISORDER [None]
  - ROAD TRAFFIC ACCIDENT [None]
  - SPINAL OSTEOARTHRITIS [None]
  - SUICIDAL IDEATION [None]
  - TINEA PEDIS [None]
  - VIRAL INFECTION [None]
